FAERS Safety Report 5119467-9 (Version None)
Quarter: 2006Q3

REPORT INFORMATION
  Report Type: 
  Country: None (occurrence: None)
  Receive Date: 20060928
  Receipt Date: 20060828
  Transmission Date: 20061208
  Serious: Yes (Other)
  Sender: FDA-Public Use
  Company Number: 2006-08-0471

PATIENT
  Age: 50 Year
  Sex: Male
  Weight: 98.8842 kg

DRUGS (7)
  1. PEG-INTRON [Suspect]
     Indication: HEPATITIS C
     Dosage: 150 MCG;/WK; SC
     Route: 058
     Dates: start: 20060428
  2. RIBAVIRIN [Suspect]
     Indication: HEPATITIS C
     Dosage: SEE IMAGE, PO
     Route: 048
     Dates: start: 20060428, end: 20060803
  3. RIBAVIRIN [Suspect]
     Indication: HEPATITIS C
     Dosage: SEE IMAGE, PO
     Route: 048
     Dates: start: 20060804
  4. RIBAVIRIN [Suspect]
     Indication: HEPATITIS C
     Dosage: SEE IMAGE, PO
     Route: 048
     Dates: start: 20060804
  5. PRILOSEC [Concomitant]
  6. ASPIRIN [Concomitant]
  7. MULTI-VITAMIN [Concomitant]

REACTIONS (34)
  - ANAEMIA [None]
  - ANTIBODY TEST POSITIVE [None]
  - ANXIETY [None]
  - ARTHRALGIA [None]
  - ASTHENIA [None]
  - BODY TEMPERATURE INCREASED [None]
  - CHEST PAIN [None]
  - COUGH [None]
  - DECREASED APPETITE [None]
  - DEHYDRATION [None]
  - DIARRHOEA [None]
  - DIZZINESS [None]
  - DRY MOUTH [None]
  - DYSPNOEA [None]
  - EPISTAXIS [None]
  - FAECES DISCOLOURED [None]
  - FATIGUE [None]
  - FEELING JITTERY [None]
  - HAEMOLYSIS [None]
  - HYPOVOLAEMIA [None]
  - INFLUENZA [None]
  - INSOMNIA [None]
  - IRRITABILITY [None]
  - LEUKOPENIA [None]
  - LOSS OF CONSCIOUSNESS [None]
  - MYALGIA [None]
  - NAUSEA [None]
  - PHARYNGOLARYNGEAL PAIN [None]
  - PRURITUS [None]
  - PYREXIA [None]
  - SINUS TACHYCARDIA [None]
  - STOMATITIS [None]
  - TINNITUS [None]
  - WEIGHT DECREASED [None]
